FAERS Safety Report 8964135 (Version 3)
Quarter: 2013Q2

REPORT INFORMATION
  Report Type: Spontaneous
  Country: IT (occurrence: IT)
  Receive Date: 20121213
  Receipt Date: 20130404
  Transmission Date: 20140414
  Serious: Yes (Other)
  Sender: FDA-Public Use
  Company Number: IT-GLAXOSMITHKLINE-B0851770A

PATIENT
  Age: 67 Year
  Sex: Female

DRUGS (9)
  1. RHYTHMOL [Suspect]
     Indication: ATRIAL FIBRILLATION
     Dosage: 650MG PER DAY
     Route: 048
     Dates: start: 20080101, end: 20121119
  2. BISOPROLOL FUMARATE [Concomitant]
     Dosage: 350MG PER DAY
     Route: 048
     Dates: start: 20121119, end: 20121119
  3. GLIBOMET [Concomitant]
  4. KCL RETARD [Concomitant]
  5. PANTECTA [Concomitant]
  6. KANRENOL [Concomitant]
  7. PREVEX [Concomitant]
  8. VASORETIC [Concomitant]
  9. CARDIOASPIRIN [Concomitant]

REACTIONS (3)
  - Presyncope [Recovered/Resolved]
  - Asthenia [Recovered/Resolved]
  - Bradycardia [Recovered/Resolved]
